FAERS Safety Report 16347581 (Version 1)
Quarter: 2019Q3

REPORT INFORMATION
  Report Type: Spontaneous
  Country: US (occurrence: US)
  Receive Date: 20190522
  Receipt Date: 20190522
  Transmission Date: 20191004
  Serious: Yes (Other)
  Sender: FDA-Public Use
  Company Number: None

PATIENT
  Age: 41 Year
  Sex: Female
  Weight: 100 kg

DRUGS (14)
  1. HYDROXYZINE [Concomitant]
     Active Substance: HYDROXYZINE HYDROCHLORIDE
  2. IMITREX [Concomitant]
     Active Substance: SUMATRIPTAN SUCCINATE
  3. LEXAPRO [Concomitant]
     Active Substance: ESCITALOPRAM OXALATE
  4. WELLBUTRIN [Concomitant]
     Active Substance: BUPROPION HYDROCHLORIDE
  5. LAMICTAL [Concomitant]
     Active Substance: LAMOTRIGINE
  6. VERAPAMIL [Concomitant]
     Active Substance: VERAPAMIL HYDROCHLORIDE
  7. VITAMIN D AND CALCIUM [Concomitant]
  8. AMITIZA [Suspect]
     Active Substance: LUBIPROSTONE
     Indication: OESOPHAGEAL MOTILITY DISORDER
     Dosage: ?          QUANTITY:1 CAPSULE(S);?
     Route: 048
     Dates: start: 20190511, end: 20190520
  9. AMITIZA [Suspect]
     Active Substance: LUBIPROSTONE
     Indication: CONSTIPATION
     Dosage: ?          QUANTITY:1 CAPSULE(S);?
     Route: 048
     Dates: start: 20190511, end: 20190520
  10. DOCUSATE WITH SENNA [Concomitant]
  11. NATURAL CALM [Concomitant]
  12. PREVACID [Concomitant]
     Active Substance: LANSOPRAZOLE
  13. ESTROGEN TOPICAL [Concomitant]
  14. MULTIVITAMIN [Concomitant]
     Active Substance: VITAMINS

REACTIONS (5)
  - Lethargy [None]
  - Oedema peripheral [None]
  - Dyspnoea [None]
  - Confusional state [None]
  - Chest pain [None]

NARRATIVE: CASE EVENT DATE: 20190520
